FAERS Safety Report 6153825-9 (Version None)
Quarter: 2009Q2

REPORT INFORMATION
  Report Type: 
  Country: None (occurrence: None)
  Receive Date: 20090414
  Receipt Date: 20090401
  Transmission Date: 20091009
  Serious: Yes (Life-Threatening, Hospitalization)
  Sender: FDA-Public Use
  Company Number: GB-RANBAXY-2009RR-23218

PATIENT
  Age: 75 Year
  Sex: Female

DRUGS (6)
  1. LORATADINE [Suspect]
     Indication: DRUG ERUPTION
     Dosage: 10 MG, QD
     Route: 048
     Dates: start: 20090228, end: 20090228
  2. ADIZEM-SR [Concomitant]
     Indication: ANGINA PECTORIS
     Dosage: 90 MG, BID
     Route: 048
  3. ASPIRIN [Concomitant]
     Dosage: 75 MG, QD
     Route: 048
  4. ISOSORBIDE MONONITRATE [Concomitant]
     Indication: ANGINA PECTORIS
     Dosage: 10 MG, BID
     Route: 048
     Dates: end: 20090228
  5. RAMIPRIL [Concomitant]
     Indication: HYPERTENSION
     Dosage: 5 MG, QD
     Route: 048
  6. SIMVASTATIN [Concomitant]
     Indication: BLOOD CHOLESTEROL INCREASED
     Dosage: 20 MG, QD
     Route: 048

REACTIONS (1)
  - ANGINA PECTORIS [None]
